FAERS Safety Report 5888250-9 (Version None)
Quarter: 2008Q3

REPORT INFORMATION
  Report Type: 
  Country: None (occurrence: None)
  Receive Date: 20080916
  Receipt Date: 20080901
  Transmission Date: 20090109
  Serious: Yes (Hospitalization)
  Sender: FDA-Public Use
  Company Number: 1000000944

PATIENT
  Age: 55 Year
  Sex: Male

DRUGS (1)
  1. LEXAPRO [Suspect]
     Dosage: 10 MG (10 MG, 1 IN 1 D) ,ORAL
     Route: 048
     Dates: start: 20080501, end: 20080801

REACTIONS (2)
  - CONVULSION [None]
  - FALL [None]
